FAERS Safety Report 4995488-1 (Version None)
Quarter: 2006Q2

REPORT INFORMATION
  Report Type: 
  Country: None (occurrence: None)
  Receive Date: 20060504
  Receipt Date: 20060413
  Transmission Date: 20061013
  Serious: Yes (Hospitalization, Disabling)
  Sender: FDA-Public Use
  Company Number: 302932

PATIENT
  Age: 14 Year
  Sex: Male

DRUGS (21)
  1. ACCUTANE [Suspect]
     Indication: ACNE CYSTIC
     Dosage: 40 MG 1 PER 2 DAY ORAL
     Route: 048
     Dates: start: 19910321, end: 20000615
  2. BACTRIM [Concomitant]
  3. ZITHROMAX [Concomitant]
  4. ROBITUSSIN AC (CODEINE PHOSPHATE/GUAIFENESIN) [Concomitant]
  5. TETRACYCLINE [Concomitant]
  6. MYCOLOG (NYSTATIN/TRIAMCINOLONE ACETONIDE) [Concomitant]
  7. MINOCYCLINE HCL [Concomitant]
  8. TAGAMET [Concomitant]
  9. 1 CONCOMITANT DRUG (GENERIC COMPONENT (S) [Concomitant]
  10. DHEA (PRASTERONE) [Concomitant]
  11. HUMIBID (GUAIFENESIN) [Concomitant]
  12. HUMIBID DM (DEXTROMETHORPHAN HYDROBROMIDE/GUAIFENESIN) [Concomitant]
  13. ACCOLATE [Concomitant]
  14. BIAXIN [Concomitant]
  15. ENTEX LA (GUAIFENESIN/PHENYLPROPANOLAMINE HYDROCHLORIDE) [Concomitant]
  16. IMODIUM A-D [Concomitant]
  17. ALEVE [Concomitant]
  18. DOXICYCLIN (DOXYCYCLINE) [Concomitant]
  19. NAPRELAN [Concomitant]
  20. ANAPROX [Concomitant]
  21. FLEXERIL [Concomitant]

REACTIONS (92)
  - ABDOMINAL PAIN [None]
  - ABDOMINAL PAIN LOWER [None]
  - ABDOMINAL PAIN UPPER [None]
  - ACNE [None]
  - AGITATION [None]
  - ANAL FISSURE [None]
  - ANAL FISTULA [None]
  - ANXIETY [None]
  - ARTHRALGIA [None]
  - BACK PAIN [None]
  - BLOOD TRIGLYCERIDES INCREASED [None]
  - BOWEL SOUNDS ABNORMAL [None]
  - BRONCHITIS [None]
  - BURNING SENSATION [None]
  - CELLULITIS [None]
  - CHEST PAIN [None]
  - CHILLS [None]
  - COLITIS ULCERATIVE [None]
  - CONDITION AGGRAVATED [None]
  - COSTOCHONDRITIS [None]
  - CROHN'S DISEASE [None]
  - DECREASED APPETITE [None]
  - DEPRESSION [None]
  - DIARRHOEA [None]
  - DIARRHOEA HAEMORRHAGIC [None]
  - DIZZINESS [None]
  - DRUG INEFFECTIVE [None]
  - FATIGUE [None]
  - FEELING ABNORMAL [None]
  - FEELING JITTERY [None]
  - FISTULA [None]
  - FOLLICULITIS [None]
  - GASTRIC DISORDER [None]
  - GASTROENTERITIS BACTERIAL [None]
  - HAEMATOCHEZIA [None]
  - HAEMATOSPERMIA [None]
  - HAEMORRHOIDS [None]
  - HEADACHE [None]
  - HYDROCELE [None]
  - IMPAIRED WORK ABILITY [None]
  - INCISION SITE INFECTION [None]
  - INFECTED VARICOSE VEIN [None]
  - INFECTION [None]
  - INFLAMMATORY BOWEL DISEASE [None]
  - INGROWING NAIL [None]
  - INGUINAL HERNIA [None]
  - INSOMNIA [None]
  - IRRITABILITY [None]
  - JOINT INJURY [None]
  - LACRIMATION INCREASED [None]
  - LIMB INJURY [None]
  - LOCALISED INFECTION [None]
  - LOW DENSITY LIPOPROTEIN INCREASED [None]
  - MASS [None]
  - MOOD SWINGS [None]
  - MUCOUS STOOLS [None]
  - MUSCLE TWITCHING [None]
  - MUSCULOSKELETAL CHEST PAIN [None]
  - MYALGIA [None]
  - NAUSEA [None]
  - NECK PAIN [None]
  - NIGHT SWEATS [None]
  - OSTEOARTHRITIS [None]
  - PAIN [None]
  - PAIN IN EXTREMITY [None]
  - PENIS DISORDER [None]
  - PILONIDAL CYST [None]
  - PLEURITIC PAIN [None]
  - PROCTALGIA [None]
  - PRODUCTIVE COUGH [None]
  - PSEUDOPOLYPOSIS [None]
  - PYREXIA [None]
  - RECTAL HAEMORRHAGE [None]
  - RECTAL PERFORATION [None]
  - ROAD TRAFFIC ACCIDENT [None]
  - SCROTAL CYST [None]
  - SEBORRHOEIC DERMATITIS [None]
  - SEMINAL VESICULITIS [None]
  - SINUS CONGESTION [None]
  - SINUSITIS [None]
  - SKIN LACERATION [None]
  - SKIN PAPILLOMA [None]
  - SPERMATORRHOEA [None]
  - SUICIDAL IDEATION [None]
  - TENDERNESS [None]
  - TENDONITIS [None]
  - TESTICULAR DISORDER [None]
  - THERMAL BURN [None]
  - TINEA PEDIS [None]
  - VARICOCELE REPAIR [None]
  - VARICOSE VEIN [None]
  - WEIGHT DECREASED [None]
